FAERS Safety Report 25501057 (Version 1)
Quarter: 2025Q3

REPORT INFORMATION
  Report Type: Spontaneous
  Country: US (occurrence: US)
  Receive Date: 20250701
  Receipt Date: 20250701
  Transmission Date: 20251021
  Serious: No
  Sender: BIOMARIN
  Company Number: US-BIOMARINAP-US-2025-166642

PATIENT
  Age: 37 Year
  Sex: Female

DRUGS (3)
  1. PALYNZIQ [Suspect]
     Active Substance: PEGVALIASE-PQPZ
     Indication: Phenylketonuria
  2. PALYNZIQ [Suspect]
     Active Substance: PEGVALIASE-PQPZ
  3. AMOXICILLIN [Suspect]
     Active Substance: AMOXICILLIN
     Indication: Sinusitis

REACTIONS (2)
  - Sinusitis [Unknown]
  - Drug eruption [Unknown]

NARRATIVE: CASE EVENT DATE: 20250613
